FAERS Safety Report 9378707 (Version 2)
Quarter: 2013Q3

REPORT INFORMATION
  Report Type: Spontaneous
  Country: US (occurrence: None)
  Receive Date: 20130626
  Receipt Date: 20130725
  Transmission Date: 20140515
  Serious: Yes (Other)
  Sender: FDA-Public Use
  Company Number: JPI-P-033029

PATIENT
  Age: 41 Year
  Sex: Male

DRUGS (1)
  1. XYREM(500 MILLIGRAM/MILLILITERS, SOLUTION)(SODIUM OXYBATE) [Suspect]
     Indication: NARCOLEPSY
     Dosage: 4.5 GM (2.25 GM,2 IN 1 D)?
     Route: 048
     Dates: start: 20061003

REACTIONS (4)
  - Drug tolerance [None]
  - Seizure like phenomena [None]
  - Hunger [None]
  - Fall [None]
